FAERS Safety Report 10039863 (Version 2)
Quarter: 2014Q1

REPORT INFORMATION
  Report Type: Spontaneous
  Country: GB (occurrence: GB)
  Receive Date: 20140326
  Receipt Date: 20140326
  Transmission Date: 20141002
  Serious: Yes (Hospitalization)
  Sender: FDA-Public Use
  Company Number: GB-JNJFOC-20131216600

PATIENT
  Age: 79 Year
  Sex: Female

DRUGS (9)
  1. XARELTO [Suspect]
     Indication: EMBOLISM VENOUS
     Route: 048
  2. XARELTO [Suspect]
     Indication: PULMONARY EMBOLISM
     Route: 048
  3. ATORVASTATIN [Concomitant]
     Route: 065
  4. AZATHIOPRINE [Concomitant]
     Route: 065
  5. SOTALOL [Concomitant]
     Route: 065
  6. BETAHISTINE [Concomitant]
     Route: 065
  7. OMEPRAZOLE [Concomitant]
     Route: 065
  8. PREDNISOLONE [Concomitant]
     Route: 065
  9. ADCAL-D3 [Concomitant]
     Route: 065

REACTIONS (2)
  - Gastrointestinal haemorrhage [Unknown]
  - Gastrointestinal tract adenoma [Unknown]
